FAERS Safety Report 6289966-5 (Version None)
Quarter: 2009Q3

REPORT INFORMATION
  Report Type: 
  Country: None (occurrence: None)
  Receive Date: 20090730
  Receipt Date: 20081007
  Transmission Date: 20100115
  Serious: No
  Sender: FDA-Public Use
  Company Number: US-BRISTOL-MYERS SQUIBB COMPANY-14360960

PATIENT
  Age: 76 Year
  Sex: Female
  Weight: 88 kg

DRUGS (10)
  1. COUMADIN [Suspect]
     Indication: CARDIAC FAILURE CONGESTIVE
     Dates: start: 20080906
  2. TRICOR [Concomitant]
  3. TORSEMIDE [Concomitant]
  4. SYNTHROID [Concomitant]
  5. BENICAR [Concomitant]
  6. NORVASC [Concomitant]
  7. SIMVASTATIN [Concomitant]
  8. STARLIX [Concomitant]
  9. HUMULIN N [Concomitant]
  10. HUMALOG [Concomitant]

REACTIONS (2)
  - NAUSEA [None]
  - VOMITING [None]
